FAERS Safety Report 25585715 (Version 3)
Quarter: 2025Q4

REPORT INFORMATION
  Report Type: Spontaneous
  Country: US (occurrence: US)
  Receive Date: 20250721
  Receipt Date: 20251210
  Transmission Date: 20260118
  Serious: Yes (Other)
  Sender: PFIZER
  Company Number: US-PFIZER INC-202500146439

PATIENT
  Age: 52 Year
  Sex: Female

DRUGS (1)
  1. VELSIPITY [Suspect]
     Active Substance: ETRASIMOD ARGININE
     Indication: Colitis ulcerative
     Dosage: 2 MG

REACTIONS (1)
  - Lower respiratory tract infection [Unknown]
